FAERS Safety Report 10716912 (Version 2)
Quarter: 2015Q1

REPORT INFORMATION
  Report Type: Spontaneous
  Country: US (occurrence: US)
  Receive Date: 20150116
  Receipt Date: 20150129
  Transmission Date: 20150721
  Serious: Yes (Death, Hospitalization, Other)
  Sender: FDA-Public Use
  Company Number: US-MERCK-1501USA004759

PATIENT
  Sex: Female
  Weight: 67.12 kg

DRUGS (1)
  1. JANUVIA [Suspect]
     Active Substance: SITAGLIPTIN PHOSPHATE
     Indication: TYPE 2 DIABETES MELLITUS
     Dosage: 100 MG, QD
     Route: 048
     Dates: start: 20120902, end: 20121218

REACTIONS (8)
  - Ascites [Unknown]
  - Paracentesis [Unknown]
  - Pancreatic carcinoma [Unknown]
  - Death [Fatal]
  - Dyspnoea [Unknown]
  - Decreased activity [Unknown]
  - Pulmonary congestion [Unknown]
  - Asthenia [Unknown]

NARRATIVE: CASE EVENT DATE: 20121126
